FAERS Safety Report 9977740 (Version 1)
Quarter: 2014Q1

REPORT INFORMATION
  Report Type: Spontaneous
  Country: US (occurrence: US)
  Receive Date: 20140306
  Receipt Date: 20140306
  Transmission Date: 20141002
  Serious: No
  Sender: FDA-Public Use
  Company Number: US-ABBVIE-13P-163-1162738-00

PATIENT
  Age: 66 Year
  Sex: Female
  Weight: 88.08 kg

DRUGS (10)
  1. HUMIRA [Suspect]
     Indication: RHEUMATOID ARTHRITIS
     Dates: start: 20130605
  2. ARAVA [Concomitant]
     Indication: RHEUMATOID ARTHRITIS
  3. GABAPENTIN [Concomitant]
     Indication: NEURALGIA
  4. ESCITALOPRAM [Concomitant]
     Indication: MENOPAUSE
  5. HYDROCHLOROTHIAZIDE [Concomitant]
     Indication: HYPERTENSION
  6. ZANTAC [Concomitant]
     Indication: GASTROOESOPHAGEAL REFLUX DISEASE
  7. AMITRIPTYLINE [Concomitant]
     Indication: NEURALGIA
  8. CALCIUM [Concomitant]
     Indication: VITAMIN SUPPLEMENTATION
  9. VITAMIN C [Concomitant]
     Indication: VITAMIN SUPPLEMENTATION
  10. VITAMIN D [Concomitant]
     Indication: VITAMIN SUPPLEMENTATION

REACTIONS (1)
  - Injection site pain [Recovered/Resolved]
